FAERS Safety Report 17806329 (Version 1)
Quarter: 2020Q2

REPORT INFORMATION
  Report Type: Spontaneous
  Country: DE (occurrence: DE)
  Receive Date: 20200520
  Receipt Date: 20200520
  Transmission Date: 20200714
  Serious: Yes (Hospitalization)
  Sender: FDA-Public Use
  Company Number: DE-TEVA-2020-DE-1236401

PATIENT
  Age: 63 Year
  Sex: Male

DRUGS (9)
  1. VITAMIN D 1000 [Concomitant]
     Dosage: 1000 IU (INTERNATIONAL UNIT) DAILY;  1-0-0-0
  2. VELMETIA 50MG/1000MG [Concomitant]
     Dosage: 2 DOSAGE FORMS DAILY; 1000|50 MG, 1-0-1-0
  3. SIMVASTATIN. [Concomitant]
     Active Substance: SIMVASTATIN
     Dosage: 30 MILLIGRAM DAILY;  0-0-0-1
  4. METOPROLOL. [Concomitant]
     Active Substance: METOPROLOL
     Dosage: 95 MILLIGRAM DAILY;  1-0-0-0
  5. PREDNISOLON [Suspect]
     Active Substance: PREDNISOLONE
     Dosage: 5 MILLIGRAM DAILY;  1-0-0-0
  6. PANTOPRAZOL [Concomitant]
     Active Substance: PANTOPRAZOLE SODIUM
     Dosage: 20 MILLIGRAM DAILY; 1-0-0-0
  7. ROACTEMRA [Suspect]
     Active Substance: TOCILIZUMAB
     Dosage: NK 1X / WEEK MONDAY, 1-0-0-0
  8. RAMIPRIL. [Concomitant]
     Active Substance: RAMIPRIL
     Dosage: 5 MILLIGRAM DAILY; 1-0-0-0
  9. ASS 100 [Concomitant]
     Active Substance: ASPIRIN
     Dosage: 100 MILLIGRAM DAILY;  0-1-0-0

REACTIONS (3)
  - Chest pain [Unknown]
  - Blood creatine phosphokinase increased [Unknown]
  - Gamma-glutamyltransferase increased [Unknown]
